FAERS Safety Report 8185204-7 (Version None)
Quarter: 2012Q1

REPORT INFORMATION
  Report Type: 
  Country: None (occurrence: None)
  Receive Date: 20120213
  Receipt Date: 20110309
  Transmission Date: 20120608
  Serious: Yes (Hospitalization)
  Sender: FDA-Public Use
  Company Number: E2020-08765-SPO-US

PATIENT
  Age: 89 Year
  Sex: Female

DRUGS (8)
  1. VITAMIN D [Concomitant]
  2. ASPIRIN [Concomitant]
  3. NOVOLOG [Concomitant]
  4. ISOPTO CARPINE (PILOCARPINE HYDROCHLORIDE) [Concomitant]
  5. ARICEPT [Suspect]
     Indication: PRODUCT USED FOR UNKNOWN INDICATION
     Dosage: UNKNOWN, ORAL
     Route: 048
     Dates: start: 20100801, end: 20100101
  6. TRAVATAN [Concomitant]
  7. NAMENDA [Concomitant]
  8. LANTUS [Concomitant]

REACTIONS (1)
  - VOMITING [None]
